FAERS Safety Report 10037809 (Version 1)
Quarter: 2014Q1

REPORT INFORMATION
  Report Type: Spontaneous
  Country: US (occurrence: None)
  Receive Date: 20140324
  Receipt Date: 20140324
  Transmission Date: 20141002
  Serious: Yes (Hospitalization)
  Sender: FDA-Public Use
  Company Number: 2014AP002008

PATIENT
  Age: 90 Year
  Sex: Male

DRUGS (1)
  1. AZITHROMYCIN TABLETS [Suspect]
     Indication: PNEUMONIA

REACTIONS (3)
  - Cholestasis [None]
  - Pruritus [None]
  - Jaundice [None]
